FAERS Safety Report 17116054 (Version 8)
Quarter: 2020Q2

REPORT INFORMATION
  Report Type: Report from Study
  Country: GB (occurrence: GB)
  Receive Date: 20191205
  Receipt Date: 20200619
  Transmission Date: 20200713
  Serious: Yes (Hospitalization)
  Sender: FDA-Public Use
  Company Number: NVSC2019GB044411

PATIENT
  Age: 68 Year
  Sex: Male
  Weight: 86 kg

DRUGS (37)
  1. COMPARATOR PACLITAXEL [Suspect]
     Active Substance: PACLITAXEL
     Indication: NON-SMALL CELL LUNG CANCER
     Dosage: 420 MG, ONCE/SINGLE
     Route: 042
     Dates: start: 20191107, end: 20191107
  2. GENTAMICIN. [Concomitant]
     Active Substance: GENTAMICIN
     Indication: WHITE BLOOD CELL COUNT INCREASED
     Dosage: UNK
     Route: 065
     Dates: start: 20191118, end: 20191118
  3. BLINDED CARBOPLATIN [Suspect]
     Active Substance: CARBOPLATIN
     Dosage: 500 MG, ONCE/SINGLE
     Route: 042
     Dates: start: 20191128
  4. PLACEBO [Suspect]
     Active Substance: UNSPECIFIED INGREDIENT
     Dosage: 500 MG, ONCE/SINGLE
     Route: 042
     Dates: start: 20191128
  5. SANDO K [Concomitant]
     Indication: BLOOD POTASSIUM DECREASED
     Dosage: UNK
     Route: 065
     Dates: start: 20191118, end: 20191118
  6. ZOMORPH [Concomitant]
     Active Substance: MORPHINE SULFATE
     Indication: GROIN PAIN
  7. INDAPAMIDE. [Concomitant]
     Active Substance: INDAPAMIDE
     Indication: HYPERTENSION
     Dosage: UNK
     Route: 065
     Dates: start: 20181010, end: 20191105
  8. LACTULOSE. [Concomitant]
     Active Substance: LACTULOSE
     Indication: PROPHYLAXIS
     Dosage: UNK
     Route: 065
     Dates: start: 20191028
  9. BLINDED PEMETREXED [Suspect]
     Active Substance: PEMETREXED
     Indication: NON-SMALL CELL LUNG CANCER
     Dosage: 500 MG, ONCE/SINGLE
     Route: 042
     Dates: start: 20191107, end: 20191107
  10. BLINDED ACZ885 [Suspect]
     Active Substance: CANAKINUMAB
     Indication: NON-SMALL CELL LUNG CANCER
     Dosage: 500 MG, ONCE/SINGLE
     Route: 042
     Dates: start: 20191107, end: 20191107
  11. PLACEBO [Suspect]
     Active Substance: UNSPECIFIED INGREDIENT
     Indication: NON-SMALL CELL LUNG CANCER
     Dosage: 500 MG, ONCE/SINGLE
     Route: 042
     Dates: start: 20191107, end: 20191107
  12. BLINDED PEMBROLIZUMAB [Suspect]
     Active Substance: PEMBROLIZUMAB
     Dosage: 500 MG, ONCE/SINGLE
     Route: 042
     Dates: start: 20191128
  13. AQUEOUS CREAM [Concomitant]
     Indication: PRURITUS
     Dosage: UNK
     Route: 065
     Dates: start: 20191118
  14. FOLIC ACID. [Concomitant]
     Active Substance: FOLIC ACID
     Indication: HAEMOGLOBIN DECREASED
     Dosage: UNK
     Route: 065
     Dates: start: 20191120
  15. LOSARTAN. [Concomitant]
     Active Substance: LOSARTAN
     Indication: HYPERTENSION
     Dosage: UNK
     Route: 065
     Dates: start: 20181010, end: 20181105
  16. COCODAMOL [Concomitant]
     Active Substance: ACETAMINOPHEN\CODEINE PHOSPHATE
     Indication: CHEST PAIN
     Dosage: UNK
     Route: 065
     Dates: start: 20190925, end: 20191028
  17. CANAKINUMAB. [Suspect]
     Active Substance: CANAKINUMAB
     Indication: NON-SMALL CELL LUNG CANCER
     Dosage: UNK
     Route: 058
     Dates: start: 20191107
  18. COMPARATOR PACLITAXEL [Suspect]
     Active Substance: PACLITAXEL
     Dosage: 336 MG, ONCE/SINGLE
     Route: 042
     Dates: start: 20191128
  19. BLINDED NO TREATMENT RECEIVED [Suspect]
     Active Substance: INVESTIGATIONAL PRODUCT
     Indication: NON-SMALL CELL LUNG CANCER
     Dosage: 500 MG, ONCE/SINGLE
     Route: 042
     Dates: start: 20191107, end: 20191107
  20. BLINDED PEMETREXED [Suspect]
     Active Substance: PEMETREXED
     Dosage: 500 MG, ONCE/SINGLE
     Route: 042
     Dates: start: 20191128
  21. CHLORPHENAMINE [Concomitant]
     Active Substance: CHLORPHENIRAMINE MALEATE
     Indication: PRURITUS
     Dosage: UNK
     Route: 065
     Dates: start: 20191118
  22. BLINDED CARBOPLATIN [Suspect]
     Active Substance: CARBOPLATIN
     Indication: NON-SMALL CELL LUNG CANCER
     Dosage: 500 MG, ONCE/SINGLE
     Route: 042
     Dates: start: 20191107, end: 20191107
  23. BLINDED PEMBROLIZUMAB [Suspect]
     Active Substance: PEMBROLIZUMAB
     Indication: NON-SMALL CELL LUNG CANCER
     Dosage: 500 MG, ONCE/SINGLE
     Route: 042
     Dates: start: 20191107, end: 20191107
  24. ENOXAPARIN [Concomitant]
     Active Substance: ENOXAPARIN
     Indication: PROPHYLAXIS
     Dosage: UNK
     Route: 065
     Dates: start: 20191118, end: 20191118
  25. CITIRIZINE [Concomitant]
     Indication: PRURITUS
     Dosage: UNK
     Route: 065
     Dates: start: 20191121
  26. ORAMORPH [Concomitant]
     Active Substance: MORPHINE SULFATE
     Indication: CHEST PAIN
     Dosage: UNK
     Route: 065
     Dates: start: 20191002, end: 20191122
  27. BLINDED ACZ885 [Suspect]
     Active Substance: CANAKINUMAB
     Dosage: 500 MG, ONCE/SINGLE
     Route: 042
     Dates: start: 20191128
  28. BLINDED CARBOPLATIN [Suspect]
     Active Substance: CARBOPLATIN
     Dosage: 500 MG, ONCE/SINGLE
     Route: 042
     Dates: start: 20191128
  29. COMPARATOR PEMBROLIZUMAB [Suspect]
     Active Substance: PEMBROLIZUMAB
     Indication: NON-SMALL CELL LUNG CANCER
     Dosage: UNK
     Route: 042
     Dates: start: 20191107
  30. AMLODIPINE [Concomitant]
     Active Substance: AMLODIPINE BESYLATE
     Indication: HYPERTENSION
     Dosage: UNK
     Route: 065
     Dates: start: 20181010
  31. TAZOCIN [Concomitant]
     Active Substance: PIPERACILLIN SODIUM\TAZOBACTAM SODIUM
     Indication: WHITE BLOOD CELL COUNT INCREASED
     Dosage: UNK
     Route: 065
     Dates: start: 20191118, end: 20191121
  32. ZOMORPH [Concomitant]
     Active Substance: MORPHINE SULFATE
     Indication: CHEST PAIN
     Dosage: UNK
     Route: 065
     Dates: start: 20191118
  33. TERBINAFINE. [Concomitant]
     Active Substance: TERBINAFINE
     Indication: FUNGAL INFECTION
     Dosage: UNK
     Route: 065
     Dates: start: 20191118
  34. BLINDED CARBOPLATIN [Suspect]
     Active Substance: CARBOPLATIN
     Indication: NON-SMALL CELL LUNG CANCER
     Dosage: 500 MG, ONCE/SINGLE
     Route: 042
     Dates: start: 20191107, end: 20191107
  35. BLINDED NO TREATMENT RECEIVED [Suspect]
     Active Substance: INVESTIGATIONAL PRODUCT
     Dosage: 500 MG, ONCE/SINGLE
     Route: 042
     Dates: start: 20191128
  36. SENNA [Concomitant]
     Active Substance: SENNA LEAF\SENNOSIDES\SENNOSIDES A AND B
     Indication: PROPHYLAXIS
     Dosage: UNK
     Route: 065
     Dates: start: 20191028
  37. PARACETAMOL [Concomitant]
     Active Substance: ACETAMINOPHEN
     Indication: CHEST PAIN
     Dosage: UNK
     Route: 065
     Dates: start: 20191028

REACTIONS (1)
  - Neutropenia [Recovered/Resolved]

NARRATIVE: CASE EVENT DATE: 20191118
